FAERS Safety Report 24158601 (Version 2)
Quarter: 2024Q4

REPORT INFORMATION
  Report Type: Spontaneous
  Country: CA (occurrence: CA)
  Receive Date: 20240731
  Receipt Date: 20241030
  Transmission Date: 20250115
  Serious: Yes (Other)
  Sender: PFIZER
  Company Number: CA-PFIZER INC-202300173823

PATIENT
  Age: 43 Year
  Sex: Male

DRUGS (3)
  1. RUXIENCE [Suspect]
     Active Substance: RITUXIMAB-PVVR
     Indication: Multiple sclerosis
     Dosage: 1000 MG, Q2 WEEKS ON DAY 1 AND DAY 15
     Route: 042
     Dates: start: 20230523, end: 20230605
  2. RUXIENCE [Suspect]
     Active Substance: RITUXIMAB-PVVR
     Dosage: 1000 MG, Q6 MONTHS MAINTENANCE
     Route: 042
     Dates: start: 20231127
  3. RUXIENCE [Suspect]
     Active Substance: RITUXIMAB-PVVR
     Dosage: 1000 MG, Q6 MONTHS MAINTENANCE
     Route: 042
     Dates: start: 20240626

REACTIONS (3)
  - Multiple sclerosis relapse [Recovered/Resolved]
  - Nasal septum deviation [Unknown]
  - Off label use [Unknown]

NARRATIVE: CASE EVENT DATE: 20230523
